FAERS Safety Report 20724839 (Version 1)
Quarter: 2022Q2

REPORT INFORMATION
  Report Type: Spontaneous
  Country: US (occurrence: None)
  Receive Date: 20220418
  Receipt Date: 20220418
  Transmission Date: 20220721
  Serious: Yes (Death)
  Sender: FDA-Public Use
  Company Number: None

PATIENT
  Age: 38 Year
  Sex: Male
  Weight: 82.8 kg

DRUGS (1)
  1. ENTRESTO [Suspect]
     Active Substance: SACUBITRIL\VALSARTAN
     Indication: Cardiac failure congestive
     Dosage: OTHER QUANTITY : 1 TABLET(S);?OTHER FREQUENCY : HALF TABLET TWICE;?
     Route: 048
     Dates: start: 20220308, end: 20220409

REACTIONS (1)
  - Ventricular fibrillation [None]

NARRATIVE: CASE EVENT DATE: 20220410
